FAERS Safety Report 10678041 (Version 1)
Quarter: 2014Q4

REPORT INFORMATION
  Report Type: Spontaneous
  Country: US (occurrence: None)
  Receive Date: 20141223
  Receipt Date: 20141223
  Transmission Date: 20150529
  Serious: Yes (Other)
  Sender: FDA-Public Use
  Company Number: 2014-US-005994

PATIENT
  Age: 66 Year
  Sex: Female

DRUGS (2)
  1. ALL OTHER THERAPEUTIC PRODUCTS (UNSPECIFIED MEDICATIONS) [Suspect]
     Active Substance: UNSPECIFIED INGREDIENT
     Indication: PRODUCT USED FOR UNKNOWN INDICATION
     Dosage: UNKNOWN DOSE
  2. XYREM [Suspect]
     Active Substance: SODIUM OXYBATE
     Indication: APNOEA
     Route: 048
     Dates: start: 200903, end: 2009

REACTIONS (5)
  - Periarthritis [None]
  - Malaise [None]
  - Spinal column stenosis [None]
  - Off label use [None]
  - Insomnia [None]

NARRATIVE: CASE EVENT DATE: 200903
